FAERS Safety Report 20430431 (Version 1)
Quarter: 2022Q1

REPORT INFORMATION
  Report Type: Report from Study
  Country: FR (occurrence: FR)
  Receive Date: 20220204
  Receipt Date: 20220204
  Transmission Date: 20220423
  Serious: Yes (Hospitalization)
  Sender: FDA-Public Use
  Company Number: FR-SERVIER-S20007657

PATIENT

DRUGS (5)
  1. PEGASPARGASE [Suspect]
     Active Substance: PEGASPARGASE
     Indication: Acute lymphocytic leukaemia
     Dosage: 1462.5 IU, ON D4, D43
     Route: 042
     Dates: start: 20200713
  2. TN UNSEPCIFIED [Concomitant]
     Indication: Acute lymphocytic leukaemia
     Dosage: 0.9 MG, , ON D1, D8, D15, D43, D50
     Route: 042
     Dates: start: 20200710
  3. TN UNSEPCIFIED [Concomitant]
     Indication: Acute lymphocytic leukaemia
     Dosage: 14.8 MG, ON D1, D8, D15
     Route: 042
     Dates: start: 20200710
  4. TN UNSEPCIFIED [Concomitant]
     Indication: Acute lymphocytic leukaemia
     Dosage: 15 MG, FROM D1 TO D31
     Route: 037
     Dates: start: 20200713
  5. TN UNSEPCIFIED [Concomitant]
     Indication: Acute lymphocytic leukaemia
     Dosage: 6 MG, FROM D1 TO D7, D15 TO D21, D29 TO D42
     Route: 048
     Dates: start: 20200710

REACTIONS (1)
  - Abdominal pain [Recovered/Resolved]

NARRATIVE: CASE EVENT DATE: 20200731
